FAERS Safety Report 20058057 (Version 1)
Quarter: 2021Q4

REPORT INFORMATION
  Report Type: Spontaneous
  Country: ID (occurrence: None)
  Receive Date: 20211111
  Receipt Date: 20211111
  Transmission Date: 20220303
  Serious: Yes (Hospitalization)
  Sender: FDA-Public Use
  Company Number: ID-Unichem Pharmaceuticals (USA) Inc-UCM202110-000951

PATIENT
  Age: 17 Year
  Sex: Female

DRUGS (3)
  1. TRAMADOL HCL [Suspect]
     Active Substance: TRAMADOL HYDROCHLORIDE
     Indication: Drug abuse
     Dosage: UNKNOWN
  2. CLONAZEPAM [Suspect]
     Active Substance: CLONAZEPAM
     Indication: Drug abuse
     Dosage: UNKNOWN
  3. CHLORPROMAZINE [Suspect]
     Active Substance: CHLORPROMAZINE
     Indication: Drug abuse
     Dosage: UNKNOWN

REACTIONS (6)
  - Partial seizures [Recovered/Resolved]
  - Status epilepticus [Recovered/Resolved]
  - Drug abuse [Unknown]
  - Hallucinations, mixed [Recovered/Resolved]
  - Vomiting [Recovered/Resolved]
  - Depressed level of consciousness [Recovered/Resolved]
